FAERS Safety Report 6752987-X (Version None)
Quarter: 2010Q2

REPORT INFORMATION
  Report Type: 
  Country: None (occurrence: None)
  Receive Date: 20100602
  Receipt Date: 20100602
  Transmission Date: 20101027
  Serious: Yes (Life-Threatening, Hospitalization, Disabling)
  Sender: FDA-Public Use
  Company Number: None

PATIENT
  Sex: Male
  Weight: 113.3993 kg

DRUGS (3)
  1. SEROQUEL [Suspect]
     Indication: PSYCHOTIC DISORDER
     Dosage: 400 MG 1 WEEK PRIOR 5-25-10
  2. ATIVAN [Suspect]
     Indication: AFFECTIVE DISORDER
     Dosage: 2 MG DLY 1 WEEK PRIOR 5-25-10
  3. HALDOL [Concomitant]

REACTIONS (5)
  - ACUTE MYOCARDIAL INFARCTION [None]
  - AMNESIA [None]
  - ASTHENIA [None]
  - MYOCARDIAL INFARCTION [None]
  - WEIGHT INCREASED [None]
